FAERS Safety Report 15471051 (Version 1)
Quarter: 2018Q4

REPORT INFORMATION
  Report Type: Spontaneous
  Country: KW (occurrence: KW)
  Receive Date: 20181006
  Receipt Date: 20181006
  Transmission Date: 20190205
  Serious: Yes (Death, Other)
  Sender: FDA-Public Use
  Company Number: KW-009507513-1809KWT012265

PATIENT
  Age: 19 Week
  Sex: Male

DRUGS (1)
  1. CASPOFUNGIN ACETATE. [Suspect]
     Active Substance: CASPOFUNGIN ACETATE
     Indication: SEPSIS
     Dosage: UNK, FOR 5 DAYS
     Dates: start: 20171022

REACTIONS (2)
  - Sepsis [Fatal]
  - Drug ineffective [Fatal]

NARRATIVE: CASE EVENT DATE: 201710
